FAERS Safety Report 6243367-4 (Version None)
Quarter: 2009Q2

REPORT INFORMATION
  Report Type: 
  Country: None (occurrence: None)
  Receive Date: 20090622
  Receipt Date: 20090622
  Transmission Date: 20091009
  Serious: No
  Sender: FDA-Public Use
  Company Number: None

PATIENT
  Age: 58 Year
  Sex: Male
  Weight: 107.5025 kg

DRUGS (1)
  1. ZICAM COLD REMEDY NASAL GEL ZINCUM GLUCONICUM 2X MATRIXX INITIATIVES, [Suspect]
     Indication: NASOPHARYNGITIS
     Dosage: PRE-MEASURED APPLICATOR EVERY FOUR HOURS
     Route: 006
     Dates: start: 19991201, end: 20090228

REACTIONS (3)
  - ANOSMIA [None]
  - DRUG INEFFECTIVE [None]
  - HYPOGEUSIA [None]
